FAERS Safety Report 5822104-9 (Version None)
Quarter: 2008Q3

REPORT INFORMATION
  Report Type: 
  Country: None (occurrence: None)
  Receive Date: 20080725
  Receipt Date: 20080715
  Transmission Date: 20090109
  Serious: Yes (Other)
  Sender: FDA-Public Use
  Company Number: US-JNJFOC-20080704456

PATIENT
  Age: 83 Year
  Sex: Male

DRUGS (14)
  1. VIADUR [Suspect]
  2. VIADUR [Suspect]
     Indication: DRUG USE FOR UNKNOWN INDICATION
  3. TOPROL-XL [Concomitant]
     Route: 065
  4. PAXIL [Concomitant]
     Route: 065
  5. LASIX [Concomitant]
     Route: 065
  6. KLOR K TABLETS [Concomitant]
     Route: 065
  7. ZETIA [Concomitant]
     Route: 065
  8. COUMADIN [Concomitant]
     Dosage: FLUCTUATING DOSAGES
     Route: 065
  9. POMEGRANATE SUPPLEMENT [Concomitant]
     Route: 065
  10. IYCOPENE [Concomitant]
     Route: 065
  11. IRON SUPPLEMENT [Concomitant]
     Route: 065
  12. GARLIC [Concomitant]
     Route: 065
  13. FISH OIL [Concomitant]
     Route: 065
  14. OMEGA [Concomitant]
     Route: 065

REACTIONS (5)
  - ANAEMIA [None]
  - AORTIC VALVE REPLACEMENT [None]
  - ASTHENIA [None]
  - BLOOD TESTOSTERONE INCREASED [None]
  - PROSTATIC SPECIFIC ANTIGEN INCREASED [None]
